FAERS Safety Report 8287691-2 (Version None)
Quarter: 2012Q2

REPORT INFORMATION
  Report Type: 
  Country: None (occurrence: None)
  Receive Date: 20120416
  Receipt Date: 20120411
  Transmission Date: 20120825
  Serious: Yes (Death, Hospitalization)
  Sender: FDA-Public Use
  Company Number: PHHY2012SK029028

PATIENT
  Sex: Female

DRUGS (5)
  1. INDACATEROL [Suspect]
     Indication: CHRONIC OBSTRUCTIVE PULMONARY DISEASE
     Dosage: 150 UG, UNK
     Dates: start: 20110530
  2. PREDNISONE TAB [Concomitant]
     Indication: CHRONIC OBSTRUCTIVE PULMONARY DISEASE
     Dates: start: 20120214
  3. SYNTOPHYLLIN [Concomitant]
     Indication: CHRONIC OBSTRUCTIVE PULMONARY DISEASE
     Dates: start: 20120206, end: 20120214
  4. OXYGEN THERAPY [Concomitant]
     Indication: RESPIRATORY FAILURE
     Dates: start: 20120206
  5. OXANTIL [Concomitant]
     Indication: CHRONIC OBSTRUCTIVE PULMONARY DISEASE
     Dates: start: 20120214

REACTIONS (4)
  - CARDIOPULMONARY FAILURE [None]
  - DYSPNOEA [None]
  - HYPERCAPNIA [None]
  - RESPIRATORY FAILURE [None]
